FAERS Safety Report 8576949-5 (Version None)
Quarter: 2012Q3

REPORT INFORMATION
  Report Type: 
  Country: None (occurrence: None)
  Receive Date: 20120725
  Receipt Date: 20120713
  Transmission Date: 20120928
  Serious: Yes (Hospitalization, Other)
  Sender: FDA-Public Use
  Company Number: IMP_05936_2012

PATIENT
  Age: 54 Year
  Sex: Male
  Weight: 80 kg

DRUGS (7)
  1. CEFAZOLIN [Concomitant]
  2. NITROUS OXIDE (N20/02) [Suspect]
     Indication: GENERAL ANAESTHESIA
     Dosage: (DF)
  3. ATRACURIUM BESYLATE [Suspect]
     Indication: GENERAL ANAESTHESIA
     Dosage: (0.5 MG/KG)
  4. ISOFLURANE [Suspect]
     Indication: GENERAL ANAESTHESIA
     Dosage: (DF)
  5. TAMSULOSIN HCL [Suspect]
     Indication: BENIGN PROSTATIC HYPERPLASIA
     Dosage: (0.4 MG QD, [AT NIGHT])
  6. THIOPENTONE SODIUM (SODIUM THIOPENTONE) [Suspect]
     Indication: GENERAL ANAESTHESIA
  7. MEPERIDINE HYDROCHLORIDE [Suspect]
     Indication: GENERAL ANAESTHESIA

REACTIONS (5)
  - URTICARIA [None]
  - BRONCHOSPASM [None]
  - HYPOTENSION [None]
  - FACE OEDEMA [None]
  - ERYTHEMA [None]
